FAERS Safety Report 7118187-9 (Version None)
Quarter: 2010Q4

REPORT INFORMATION
  Report Type: 
  Country: None (occurrence: None)
  Receive Date: 20101123
  Receipt Date: 20101114
  Transmission Date: 20110411
  Serious: Yes (Hospitalization)
  Sender: FDA-Public Use
  Company Number: IL-BRISTOL-MYERS SQUIBB COMPANY-15386154

PATIENT
  Age: 70 Year
  Sex: Female
  Weight: 56 kg

DRUGS (3)
  1. CETUXIMAB [Suspect]
     Indication: GASTROOESOPHAGEAL CANCER
     Dosage: NO OF INF:1 STRENGTH:5MG/ML;TEMP DISC:08NOV2010 RECENT DOSE:01NOV10
     Route: 042
     Dates: start: 20101101
  2. CISPLATIN [Suspect]
     Indication: GASTROOESOPHAGEAL CANCER
     Dosage: DAY 1 OF CYCLE TEMPORARILY DISCONTINUED:08NOV2010 RECENT DOSE:01NOV10
     Route: 042
     Dates: start: 20101101
  3. XELODA [Suspect]
     Indication: GASTROOESOPHAGEAL CANCER
     Dosage: DAY 1 TO 15 TEMP DISCOTINUED:7NOV10
     Route: 048
     Dates: start: 20101101

REACTIONS (2)
  - DIARRHOEA [None]
  - PERIPHERAL ISCHAEMIA [None]
